FAERS Safety Report 5077646-3 (Version None)
Quarter: 2006Q3

REPORT INFORMATION
  Report Type: 
  Country: None (occurrence: None)
  Receive Date: 20060807
  Receipt Date: 20060719
  Transmission Date: 20061208
  Serious: Yes (Hospitalization)
  Sender: FDA-Public Use
  Company Number: US200607005117

PATIENT
  Age: 58 Year
  Sex: Female

DRUGS (6)
  1. HUMULIN 70/30 [Suspect]
     Dates: end: 20060718
  2. ACTOS [Concomitant]
  3. BYETTA [Concomitant]
  4. METFORMIN [Concomitant]
  5. OXYGEN (OXYGEN) [Concomitant]
  6. COMBIVENT [Concomitant]

REACTIONS (8)
  - ASTHMA [None]
  - CHRONIC OBSTRUCTIVE PULMONARY DISEASE [None]
  - DEMENTIA [None]
  - HYPERTENSION [None]
  - NAUSEA [None]
  - TREATMENT NONCOMPLIANCE [None]
  - VOMITING [None]
  - WEIGHT DECREASED [None]
